FAERS Safety Report 4445748-8 (Version None)
Quarter: 2004Q3

REPORT INFORMATION
  Report Type: 
  Country: None (occurrence: None)
  Receive Date: 20040910
  Receipt Date: 20040830
  Transmission Date: 20050211
  Serious: Yes (Other)
  Sender: FDA-Public Use
  Company Number: JP-JNJFOC-20040701503

PATIENT
  Sex: Male

DRUGS (23)
  1. FENTANYL [Suspect]
     Route: 062
  2. FENTANYL [Suspect]
     Route: 062
  3. FENTANYL [Suspect]
     Route: 062
  4. FENTANYL [Suspect]
     Route: 062
  5. FENTANYL [Suspect]
     Indication: CANCER PAIN
     Route: 062
  6. ZOLPIDEM TARTRATE [Concomitant]
     Indication: SLEEP DISORDER THERAPY
     Route: 049
  7. MORPHINE HYDROCHLORIDE [Concomitant]
     Route: 049
  8. MORPHINE HYDROCHLORIDE [Concomitant]
     Route: 049
  9. MORPHINE HYDROCHLORIDE [Concomitant]
     Route: 049
  10. MORPHINE HYDROCHLORIDE [Concomitant]
     Route: 049
  11. MORPHINE HYDROCHLORIDE [Concomitant]
     Route: 049
  12. MORPHINE HYDROCHLORIDE [Concomitant]
     Route: 049
  13. MORPHINE HYDROCHLORIDE [Concomitant]
     Indication: CANCER PAIN
     Route: 049
  14. CAMOSTAT MESILATE [Concomitant]
     Route: 049
  15. MEDROXYPROGESTERONE ACETATE [Concomitant]
     Indication: ANOREXIA
     Route: 049
  16. BROMHEXINE HYDROCHLORIDE [Concomitant]
     Route: 049
  17. AMBROXOL HYDROCHLORIDE [Concomitant]
     Route: 049
  18. RIBOFLAVIN SODIUM PHOSPHATE [Concomitant]
     Indication: VITAMIN SUPPLEMENTATION
  19. PYRIDOXAL PHOSPHATE [Concomitant]
     Indication: VITAMIN SUPPLEMENTATION
  20. PANTHENOL [Concomitant]
     Indication: VITAMIN SUPPLEMENTATION
  21. ASCORBIC ACID [Concomitant]
     Indication: VITAMIN SUPPLEMENTATION
  22. CYANOCOBALAMIN [Concomitant]
     Indication: VITAMIN SUPPLEMENTATION
  23. THIAMINE HCL [Concomitant]
     Indication: VITAMIN SUPPLEMENTATION
     Route: 065

REACTIONS (3)
  - HYPERKALAEMIA [None]
  - PNEUMONIA [None]
  - PYREXIA [None]
